FAERS Safety Report 21453757 (Version 1)
Quarter: 2022Q4

REPORT INFORMATION
  Report Type: Spontaneous
  Country: US (occurrence: US)
  Receive Date: 20221013
  Receipt Date: 20221013
  Transmission Date: 20230112
  Serious: Yes (Death, Other)
  Sender: FDA-Public Use
  Company Number: US-PFIZER INC-202201218718

PATIENT
  Age: 68 Year
  Sex: Male
  Weight: 113.4 kg

DRUGS (2)
  1. RAPAMUNE [Suspect]
     Active Substance: SIROLIMUS
     Indication: Heart transplant
     Dosage: 1MG TABLET, DOSAGE UNKNOWN THINK 2 PILLS THEN 3 PILLS ALTERNATED DAYS
     Dates: start: 2018
  2. RAPAMUNE [Suspect]
     Active Substance: SIROLIMUS
     Dosage: 1MG TABLET, DOSAGE UNKNOWN THINK 2 PILLS THEN 3 PILLS ALTERNATED DAYS
     Dates: start: 2018

REACTIONS (2)
  - COVID-19 [Fatal]
  - Off label use [Unknown]

NARRATIVE: CASE EVENT DATE: 20180101
